FAERS Safety Report 14876622 (Version 1)
Quarter: 2018Q2

REPORT INFORMATION
  Report Type: Spontaneous
  Country: CA (occurrence: CA)
  Receive Date: 20180510
  Receipt Date: 20180510
  Transmission Date: 20180711
  Serious: Yes (Other)
  Sender: FDA-Public Use
  Company Number: PHHY2018CA005997

PATIENT
  Age: 80 Year
  Sex: Male

DRUGS (1)
  1. RIVASTIGMINE SANDOZ [Suspect]
     Active Substance: RIVASTIGMINE
     Indication: PRODUCT USED FOR UNKNOWN INDICATION
     Dosage: UNK (10 MG AND 5 MG PATCH TOGETHER)
     Route: 065

REACTIONS (2)
  - Speech disorder [Unknown]
  - Loss of consciousness [Unknown]

NARRATIVE: CASE EVENT DATE: 20180506
